FAERS Safety Report 6706866-4 (Version None)
Quarter: 2010Q2

REPORT INFORMATION
  Report Type: 
  Country: None (occurrence: None)
  Receive Date: 20100430
  Receipt Date: 20100430
  Transmission Date: 20101027
  Serious: Yes (Hospitalization)
  Sender: FDA-Public Use
  Company Number: None

PATIENT
  Age: 17 Year
  Sex: Male
  Weight: 81.6475 kg

DRUGS (1)
  1. STRATTERA [Suspect]
     Indication: ATTENTION DEFICIT/HYPERACTIVITY DISORDER
     Dosage: 1-2 CAPSULES 1X A DAY PO
     Route: 048
     Dates: start: 20100331, end: 20100425

REACTIONS (5)
  - DEPRESSION [None]
  - FEAR [None]
  - MOOD SWINGS [None]
  - MORBID THOUGHTS [None]
  - SUICIDAL IDEATION [None]
